FAERS Safety Report 10273712 (Version 1)
Quarter: 2014Q2

REPORT INFORMATION
  Report Type: Spontaneous
  Country: US (occurrence: None)
  Receive Date: 20140630
  Receipt Date: 20140630
  Transmission Date: 20141212
  Serious: Yes (Hospitalization)
  Sender: FDA-Public Use
  Company Number: None

PATIENT
  Age: 83 Year
  Sex: Male
  Weight: 94.4 kg

DRUGS (2)
  1. CHLORHEXIDINE GLUCONATE [Suspect]
     Indication: CARDIAC OPERATION
     Route: 061
     Dates: start: 20140601, end: 20140601
  2. CHLORHEXIDINE GLUCONATE [Suspect]
     Route: 061
     Dates: start: 20140601, end: 20140601

REACTIONS (2)
  - Urticaria [None]
  - Rash [None]
